FAERS Safety Report 17458785 (Version 1)
Quarter: 2020Q1

REPORT INFORMATION
  Report Type: Spontaneous
  Country: US (occurrence: US)
  Receive Date: 20200212
  Receipt Date: 20200212
  Transmission Date: 20200409
  Serious: Yes (Other)
  Sender: FDA-Public Use
  Company Number: None

PATIENT
  Age: 89 Year
  Sex: Female
  Weight: 49.9 kg

DRUGS (10)
  1. THYROID [Concomitant]
     Active Substance: LEVOTHYROXINE\LIOTHYRONINE
  2. VIT D [Concomitant]
     Active Substance: VITAMIN D NOS
  3. OCUVITE [Concomitant]
     Active Substance: VITAMINS
  4. METOPROLOL TARTRATE 25MG [Suspect]
     Active Substance: METOPROLOL TARTRATE
     Indication: HEART RATE INCREASED
     Dosage: ?          QUANTITY:1 DF DOSAGE FORM;?
     Route: 048
     Dates: start: 20191018, end: 20191025
  5. FUROSEMIDE. [Concomitant]
     Active Substance: FUROSEMIDE
  6. MEMANTINE HCL [Concomitant]
     Active Substance: MEMANTINE
  7. VIT B [Concomitant]
     Active Substance: VITAMIN B
  8. VITAMIN C [Concomitant]
     Active Substance: ASCORBIC ACID
  9. CETRUM SILVER [Concomitant]
  10. CARVEDIOL [Concomitant]
     Active Substance: CARVEDILOL

REACTIONS (8)
  - Decreased appetite [None]
  - Vomiting [None]
  - Diarrhoea [None]
  - Cough [None]
  - Fatigue [None]
  - Wheezing [None]
  - Asthenia [None]
  - Dyspnoea [None]

NARRATIVE: CASE EVENT DATE: 20191019
